FAERS Safety Report 15340375 (Version 1)
Quarter: 2018Q3

REPORT INFORMATION
  Report Type: Spontaneous
  Country: US (occurrence: US)
  Receive Date: 20180831
  Receipt Date: 20180831
  Transmission Date: 20181010
  Serious: Yes (Other)
  Sender: FDA-Public Use
  Company Number: US-NOVOPROD-618528

PATIENT
  Age: 68 Year
  Sex: Female

DRUGS (1)
  1. NOVOLOG [Suspect]
     Active Substance: INSULIN ASPART
     Indication: TYPE 2 DIABETES MELLITUS
     Dosage: 3?4 UNITS PER MEAL
     Route: 058
     Dates: start: 2010

REACTIONS (5)
  - Epistaxis [Recovered/Resolved]
  - Hernia [Recovered/Resolved]
  - Eye infection [Recovered/Resolved with Sequelae]
  - Incarcerated hernia [Recovered/Resolved]
  - Dialysis [Not Recovered/Not Resolved]

NARRATIVE: CASE EVENT DATE: 2010
